FAERS Safety Report 6027091-9 (Version None)
Quarter: 2009Q1

REPORT INFORMATION
  Report Type: 
  Country: None (occurrence: None)
  Receive Date: 20090105
  Receipt Date: 20081222
  Transmission Date: 20090719
  Serious: Yes (Hospitalization, Other)
  Sender: FDA-Public Use
  Company Number: DE-ELI_LILLY_AND_COMPANY-DE200812005359

PATIENT
  Sex: Male
  Weight: 77 kg

DRUGS (6)
  1. ALIMTA [Suspect]
     Dosage: 950 MG, UNKNOWN
     Route: 065
     Dates: start: 20081201
  2. VINORELBINE [Concomitant]
     Dosage: 50 MG, ON DAYS ONE AND EIGHT
     Dates: end: 20081127
  3. FOLIC ACID [Concomitant]
     Dosage: 0.4 MG, DAILY (1/D)
     Route: 048
     Dates: start: 20081201
  4. DEXAMETHASONE [Concomitant]
     Dosage: 8 MG, DAILY (1/D)
     Route: 065
     Dates: start: 20081130, end: 20081202
  5. VITAMIN B-12 [Concomitant]
     Dosage: UNK, UNKNOWN
     Route: 042
  6. PHENPROCOUMON [Concomitant]
     Dosage: UNK, UNKNOWN
     Route: 065
     Dates: start: 20080501

REACTIONS (3)
  - EPISTAXIS [None]
  - HAEMATEMESIS [None]
  - PANCYTOPENIA [None]
